FAERS Safety Report 15036004 (Version 2)
Quarter: 2019Q1

REPORT INFORMATION
  Report Type: Spontaneous
  Country: US (occurrence: US)
  Receive Date: 20180620
  Receipt Date: 20190322
  Transmission Date: 20190417
  Serious: Yes (Hospitalization, Other)
  Sender: FDA-Public Use
  Company Number: US-JNJFOC-20180620007

PATIENT
  Age: 71 Year
  Sex: Female
  Weight: 49.9 kg

DRUGS (1)
  1. REMICADE [Suspect]
     Active Substance: INFLIXIMAB
     Indication: RHEUMATOID ARTHRITIS
     Route: 042
     Dates: start: 20180510, end: 20180531

REACTIONS (6)
  - Urinary incontinence [Unknown]
  - Mass [Unknown]
  - Delirium [Unknown]
  - Lung disorder [Unknown]
  - Serum sickness [Unknown]
  - Paralysis [Unknown]

NARRATIVE: CASE EVENT DATE: 2018
